FAERS Safety Report 7687142-2 (Version None)
Quarter: 2011Q3

REPORT INFORMATION
  Report Type: 
  Country: None (occurrence: None)
  Receive Date: 20110816
  Receipt Date: 20110806
  Transmission Date: 20111222
  Serious: Yes (Other)
  Sender: FDA-Public Use
  Company Number: PHEH2011US01132

PATIENT
  Sex: Female

DRUGS (4)
  1. NABUMETONE [Concomitant]
     Dosage: UNK UKN, UNK
  2. ACTHAR GEL-SYNTHETIC [Concomitant]
     Dosage: UNK UKN, UNK
  3. GILENYA [Suspect]
     Dosage: 0.5 MG, QD
     Route: 048
  4. VICODIN [Concomitant]
     Dosage: UNK UKN, UNK

REACTIONS (1)
  - CARDIAC DISORDER [None]
